FAERS Safety Report 9346862 (Version 4)
Quarter: 2013Q3

REPORT INFORMATION
  Report Type: Spontaneous
  Country: JP (occurrence: JP)
  Receive Date: 20130613
  Receipt Date: 20130911
  Transmission Date: 20140515
  Serious: Yes (Other)
  Sender: FDA-Public Use
  Company Number: JP-AMGEN-JPNSP2013041395

PATIENT
  Sex: Female
  Weight: 78 kg

DRUGS (8)
  1. ENBREL [Suspect]
     Indication: RHEUMATOID ARTHRITIS
     Dosage: 25 MG, WEEKLY
     Route: 065
     Dates: start: 20110826, end: 20130111
  2. RHEUMATREX /00113802/ [Suspect]
     Indication: RHEUMATOID ARTHRITIS
     Dosage: 8 MG, WEEKLY
     Route: 048
     Dates: start: 2007
  3. RHEUMATREX /00113802/ [Suspect]
     Dosage: 10 MG, WEEKLY
     Route: 048
     Dates: start: 200905
  4. RHEUMATREX /00113802/ [Suspect]
     Dosage: 10.5 MG, WEEKLY
     Route: 048
     Dates: start: 201010
  5. RHEUMATREX /00113802/ [Suspect]
     Dosage: 8 MG, WEEKLY
     Route: 048
     Dates: start: 20120914, end: 20130111
  6. FOLIAMIN [Concomitant]
     Indication: RHEUMATOID ARTHRITIS
     Dosage: 5 MG, WEEKLY
     Route: 048
  7. LOXONIN [Concomitant]
     Indication: RHEUMATOID ARTHRITIS
     Dosage: 60 MG, 1X/DAY
     Route: 048
  8. RESTAMIN                           /00000401/ [Concomitant]
     Indication: RHEUMATOID ARTHRITIS
     Dosage: UNK
     Route: 061
     Dates: start: 20121012

REACTIONS (3)
  - White blood cell count decreased [Recovered/Resolved]
  - Malaise [Unknown]
  - Tuberculin test positive [Unknown]
